FAERS Safety Report 8230374-5 (Version None)
Quarter: 2012Q1

REPORT INFORMATION
  Report Type: 
  Country: None (occurrence: None)
  Receive Date: 20120320
  Receipt Date: 20120306
  Transmission Date: 20120608
  Serious: Yes (Other)
  Sender: FDA-Public Use
  Company Number: 2012S1000285

PATIENT
  Age: 45 Year
  Sex: Male
  Weight: 67 kg

DRUGS (2)
  1. CEPHALEXIN [Concomitant]
  2. REDEVANT (PITAVASTATIN) [Suspect]
     Indication: DYSLIPIDAEMIA
     Dosage: 2 MG;1X;PO
     Route: 048

REACTIONS (7)
  - HAEMATOMA [None]
  - VISION BLURRED [None]
  - MALAISE [None]
  - ARTERITIS [None]
  - HEADACHE [None]
  - PARAESTHESIA [None]
  - PAIN IN EXTREMITY [None]
